FAERS Safety Report 16022425 (Version 2)
Quarter: 2019Q1

REPORT INFORMATION
  Report Type: Spontaneous
  Country: US (occurrence: US)
  Receive Date: 20190301
  Receipt Date: 20190320
  Transmission Date: 20190418
  Serious: No
  Sender: FDA-Public Use
  Company Number: US-PFIZER INC-2019079997

PATIENT
  Age: 66 Year
  Sex: Female

DRUGS (1)
  1. CHANTIX [Suspect]
     Active Substance: VARENICLINE TARTRATE
     Dosage: UNK

REACTIONS (5)
  - Mental disorder [Unknown]
  - Drug hypersensitivity [Unknown]
  - Anxiety [Unknown]
  - Drug intolerance [Unknown]
  - Aggression [Unknown]
